FAERS Safety Report 6342208-4 (Version None)
Quarter: 2009Q3

REPORT INFORMATION
  Report Type: 
  Country: None (occurrence: None)
  Receive Date: 20090903
  Receipt Date: 20090903
  Transmission Date: 20100115
  Serious: Yes (Life-Threatening, Disabling, Other)
  Sender: FDA-Public Use
  Company Number: None

PATIENT
  Age: 40 Year
  Sex: Female
  Weight: 40.8237 kg

DRUGS (1)
  1. SUBOXONE [Suspect]
     Indication: DRUG DEPENDENCE
     Dosage: 3 PER DAY SL
     Route: 060
     Dates: start: 20031001, end: 20090831

REACTIONS (9)
  - CHILD NEGLECT [None]
  - CIRCADIAN RHYTHM SLEEP DISORDER [None]
  - DEPRESSION [None]
  - IMPAIRED SELF-CARE [None]
  - INSOMNIA [None]
  - MENTAL DISORDER [None]
  - OBSESSIVE-COMPULSIVE DISORDER [None]
  - THEFT [None]
  - WEIGHT DECREASED [None]
